FAERS Safety Report 12607081 (Version 1)
Quarter: 2016Q3

REPORT INFORMATION
  Report Type: Spontaneous
  Country: US (occurrence: US)
  Receive Date: 20160729
  Receipt Date: 20160729
  Transmission Date: 20161109
  Serious: Yes (Other)
  Sender: FDA-Public Use
  Company Number: US-IGSA-GTI003341

PATIENT
  Age: 57 Year
  Sex: Male

DRUGS (2)
  1. IGIV (MANUFACTURER UNKNOWN) 10% (10 PCT) [Suspect]
     Active Substance: HUMAN IMMUNOGLOBULIN G
     Indication: MILLER FISHER SYNDROME
     Route: 042
  2. IGIV (MANUFACTURER UNKNOWN) 10% (10 PCT) [Suspect]
     Active Substance: HUMAN IMMUNOGLOBULIN G
     Indication: GUILLAIN-BARRE SYNDROME
     Route: 042

REACTIONS (4)
  - Acute kidney injury [Recovered/Resolved]
  - Haemolysis [Recovered/Resolved]
  - Fatigue [Recovered/Resolved]
  - Tonic clonic movements [Recovered/Resolved]
